FAERS Safety Report 9697360 (Version 2)
Quarter: 2013Q4

REPORT INFORMATION
  Report Type: Spontaneous
  Country: PH (occurrence: PH)
  Receive Date: 20131120
  Receipt Date: 20131126
  Transmission Date: 20140711
  Serious: Yes (Other)
  Sender: FDA-Public Use
  Company Number: PH-JNJFOC-20131105782

PATIENT
  Age: 52 Year
  Sex: Female

DRUGS (3)
  1. STELARA [Suspect]
     Indication: PSORIASIS
     Route: 058
     Dates: start: 20131109
  2. VITAMIN B COMPLEX [Concomitant]
     Route: 048
  3. ARCOXIA [Concomitant]
     Route: 065

REACTIONS (1)
  - Pain [Recovered/Resolved]
